FAERS Safety Report 15122905 (Version 1)
Quarter: 2018Q3

REPORT INFORMATION
  Report Type: Report from Study
  Country: US (occurrence: US)
  Receive Date: 20180709
  Receipt Date: 20180709
  Transmission Date: 20181010
  Serious: Yes (Other)
  Sender: FDA-Public Use
  Company Number: US-ACTELION-A-NJ2018-174903

PATIENT
  Age: 70 Year
  Sex: Female

DRUGS (2)
  1. WARFARIN [Concomitant]
     Active Substance: WARFARIN
  2. TRACLEER [Suspect]
     Active Substance: BOSENTAN
     Indication: PULMONARY ARTERIAL HYPERTENSION
     Dosage: 125 MG, BID
     Route: 048

REACTIONS (7)
  - Hyperhidrosis [Unknown]
  - Myalgia [Unknown]
  - Nausea [Unknown]
  - Drug dose omission [Unknown]
  - Chemotherapy [Unknown]
  - Feeling of body temperature change [Unknown]
  - Insomnia [Unknown]

NARRATIVE: CASE EVENT DATE: 201806
